FAERS Safety Report 7300766-7 (Version None)
Quarter: 2011Q1

REPORT INFORMATION
  Report Type: 
  Country: None (occurrence: None)
  Receive Date: 20110103
  Receipt Date: 20090821
  Transmission Date: 20110831
  Serious: Yes (Hospitalization)
  Sender: FDA-Public Use
  Company Number: US-003330

PATIENT
  Age: 44 Year
  Sex: Female

DRUGS (4)
  1. MULTIVITAMIN [Concomitant]
  2. MULTIHANCE [Suspect]
     Indication: ARTHRALGIA
     Dosage: 15 ML ONCE  INTRAVENOUS
     Route: 042
     Dates: start: 20090819, end: 20090819
  3. MULTIHANCE [Suspect]
     Indication: NUCLEAR MAGNETIC RESONANCE IMAGING
     Dosage: 15 ML ONCE  INTRAVENOUS
     Route: 042
     Dates: start: 20090819, end: 20090819
  4. IBUPROFEN [Concomitant]

REACTIONS (1)
  - ANAPHYLACTOID REACTION [None]
